FAERS Safety Report 7952099 (Version 3)
Quarter: 2013Q3

REPORT INFORMATION
  Report Type: Report from Study
  Country: RO (occurrence: RO)
  Receive Date: 20110519
  Receipt Date: 20130709
  Transmission Date: 20140515
  Serious: Yes (Death, Hospitalization, Other)
  Sender: FDA-Public Use
  Company Number: PHHO2011RO06032

PATIENT
  Age: 58 Year
  Sex: Female
  Weight: 53 kg

DRUGS (2)
  1. AMN107 [Suspect]
     Indication: CHRONIC MYELOID LEUKAEMIA
     Dosage: 300 MG, BID
     Route: 048
     Dates: start: 20101229, end: 20110329
  2. HYDROXYCARBAMIDE [Concomitant]

REACTIONS (3)
  - Thrombocytopenia [Not Recovered/Not Resolved]
  - Cardio-respiratory arrest [Fatal]
  - Pneumonia [Unknown]
